FAERS Safety Report 17919489 (Version 4)
Quarter: 2021Q4

REPORT INFORMATION
  Report Type: Spontaneous
  Country: US (occurrence: US)
  Receive Date: 20200619
  Receipt Date: 20211011
  Transmission Date: 20220303
  Serious: Yes (Other)
  Sender: FDA-Public Use
  Company Number: US-PFIZER INC-2020205793

PATIENT
  Age: 62 Year
  Sex: Male

DRUGS (1)
  1. LYRICA [Suspect]
     Active Substance: PREGABALIN
     Indication: Diabetic neuropathy
     Dosage: 200 MG, THREE TIMES A DAY
     Route: 048

REACTIONS (4)
  - Drug dependence [Unknown]
  - Malaise [Unknown]
  - Pain in extremity [Unknown]
  - Off label use [Unknown]
